FAERS Safety Report 20938029 (Version 1)
Quarter: 2022Q2

REPORT INFORMATION
  Report Type: Spontaneous
  Country: GB (occurrence: GB)
  Receive Date: 20220609
  Receipt Date: 20220609
  Transmission Date: 20220721
  Serious: Yes (Other)
  Sender: FDA-Public Use
  Company Number: GB-MYLANLABS-2022M1043152

PATIENT
  Age: 23 Year
  Sex: Female

DRUGS (9)
  1. HYDROCORTISONE [Suspect]
     Active Substance: HYDROCORTISONE
     Indication: Polyglandular disorder
     Dosage: 20 MILLIGRAM, QD
  2. HYDROCORTISONE [Suspect]
     Active Substance: HYDROCORTISONE
     Dosage: 40 MILLIGRAM, QD
  3. HYDROCORTISONE [Suspect]
     Active Substance: HYDROCORTISONE
     Dosage: DOSE OF HYDROCORTISONE WAS CHANGED TO 20 MG/DAY
  4. INSULIN ASPART [Suspect]
     Active Substance: INSULIN ASPART
     Indication: Type 1 diabetes mellitus
     Dosage: UNK (92 UNITS/DAY)
  5. INSULIN ASPART [Suspect]
     Active Substance: INSULIN ASPART
     Dosage: UNK (104UNITS/DAY)
  6. INSULIN ASPART [Suspect]
     Active Substance: INSULIN ASPART
     Dosage: UNK (226UNITS/DAY)
  7. INSULIN ASPART [Suspect]
     Active Substance: INSULIN ASPART
     Dosage: UNK (65UNITS/DAY)
  8. INSULIN ASPART [Suspect]
     Active Substance: INSULIN ASPART
     Dosage: UNK (42 UNITS/DAY)
  9. METFORMIN [Suspect]
     Active Substance: METFORMIN HYDROCHLORIDE
     Indication: Type 1 diabetes mellitus
     Dosage: UNK

REACTIONS (2)
  - Diabetes mellitus inadequate control [Recovered/Resolved]
  - Maternal exposure during pregnancy [Recovered/Resolved]
